FAERS Safety Report 17205790 (Version 1)
Quarter: 2020Q1

REPORT INFORMATION
  Report Type: Spontaneous
  Country: US (occurrence: US)
  Receive Date: 20191226
  Receipt Date: 20191226
  Transmission Date: 20200409
  Serious: Yes (Other)
  Sender: FDA-Public Use
  Company Number: None

PATIENT
  Age: 17 Year
  Sex: Female
  Weight: 49.5 kg

DRUGS (6)
  1. SILDENAFIL. [Concomitant]
     Active Substance: SILDENAFIL
  2. MULTIVITAMIN FLINTSTONES [Concomitant]
  3. MELATONIN [Concomitant]
     Active Substance: MELATONIN
  4. DRONABINOL 5MG [Suspect]
     Active Substance: DRONABINOL
     Indication: APPETITE DISORDER
     Dosage: ?          QUANTITY:1 CAPSULE(S);?
     Route: 048
     Dates: start: 20190731, end: 20191205
  5. GABAPENTIN. [Concomitant]
     Active Substance: GABAPENTIN
  6. ZINC GLUCONATE [Concomitant]
     Active Substance: ZINC GLUCONATE

REACTIONS (14)
  - Erythema [None]
  - Nausea [None]
  - Swelling face [None]
  - Skin exfoliation [None]
  - Vomiting [None]
  - Hypersensitivity [None]
  - Eye swelling [None]
  - Diarrhoea [None]
  - Rash [None]
  - Oral disorder [None]
  - Pruritus [None]
  - Fatigue [None]
  - Herpes zoster [None]
  - Suspected product contamination [None]

NARRATIVE: CASE EVENT DATE: 20191203
